FAERS Safety Report 8472412-0 (Version None)
Quarter: 2012Q2

REPORT INFORMATION
  Report Type: 
  Country: None (occurrence: None)
  Receive Date: 20120627
  Receipt Date: 20110726
  Transmission Date: 20120825
  Serious: Yes (Other)
  Sender: FDA-Public Use
  Company Number: US-AMGEN-USASP2011038432

PATIENT

DRUGS (2)
  1. EPOETIN ALFA [Suspect]
     Indication: PRODUCT USED FOR UNKNOWN INDICATION
  2. ARANESP [Suspect]
     Indication: DIALYSIS

REACTIONS (1)
  - DRUG INEFFECTIVE [None]
